FAERS Safety Report 20907919 (Version 2)
Quarter: 2022Q3

REPORT INFORMATION
  Report Type: Spontaneous
  Country: CA (occurrence: CA)
  Receive Date: 20220602
  Receipt Date: 20220715
  Transmission Date: 20221026
  Serious: Yes (Hospitalization, Other)
  Sender: FDA-Public Use
  Company Number: CA-BoehringerIngelheim-2022-BI-174316

PATIENT
  Age: 49 Year
  Sex: Male
  Weight: 71 kg

DRUGS (5)
  1. JARDIANCE [Suspect]
     Active Substance: EMPAGLIFLOZIN
     Indication: Type 2 diabetes mellitus
     Route: 048
     Dates: start: 20220224, end: 20220519
  2. METFORMIN [Concomitant]
     Active Substance: METFORMIN HYDROCHLORIDE
     Indication: Diabetes mellitus
  3. OZEMPIC [Concomitant]
     Active Substance: SEMAGLUTIDE
     Indication: Product used for unknown indication
  4. INSULIN NOS [Concomitant]
     Active Substance: INSULIN NOS
     Indication: Diabetes mellitus
     Dosage: ONCE DAILY AND INCREASING BECAUSE NO JARDIANCE
  5. INSULIN NOS [Concomitant]
     Active Substance: INSULIN NOS
     Dosage: INCREASING BECAUSE NO JARDIANCE

REACTIONS (4)
  - Diabetic ketoacidosis [Recovered/Resolved]
  - Altered state of consciousness [Unknown]
  - Renal failure [Not Recovered/Not Resolved]
  - Glycosylated haemoglobin increased [Unknown]

NARRATIVE: CASE EVENT DATE: 20220516
